FAERS Safety Report 18173715 (Version 1)
Quarter: 2020Q3

REPORT INFORMATION
  Report Type: Report from Study
  Country: RO (occurrence: RO)
  Receive Date: 20200820
  Receipt Date: 20200820
  Transmission Date: 20201103
  Serious: Yes (Hospitalization)
  Sender: FDA-Public Use
  Company Number: RO-GILEAD-2020-0490438

PATIENT
  Age: 51 Year
  Sex: Female

DRUGS (7)
  1. DETRALEX [Concomitant]
     Active Substance: DIOSMIN\HESPERIDIN
  2. APROVEL [Interacting]
     Active Substance: IRBESARTAN
     Indication: HYPERTENSION
     Dosage: 1 DOSAGE FORM, QD
     Route: 048
  3. LEDIPASVIR/SOFOSBUVIR [Suspect]
     Active Substance: LEDIPASVIR\SOFOSBUVIR
     Indication: CHRONIC HEPATITIS C
     Dosage: 1 DOSAGE FORM, QD
     Route: 048
     Dates: start: 20200811
  4. TENAXUM [Concomitant]
     Active Substance: RILMENIDINE
  5. TERTENSIF [Concomitant]
     Active Substance: INDAPAMIDE
  6. VESSEL DUE [Concomitant]
     Active Substance: SULODEXIDE
  7. PENTOXI [Concomitant]

REACTIONS (9)
  - Headache [Recovering/Resolving]
  - Vomiting [Not Recovered/Not Resolved]
  - Asthenia [Recovering/Resolving]
  - Nausea [Recovering/Resolving]
  - Dizziness [Recovering/Resolving]
  - Chest pain [Recovering/Resolving]
  - Drug interaction [Unknown]
  - Heart rate increased [Recovering/Resolving]
  - Fatigue [Not Recovered/Not Resolved]

NARRATIVE: CASE EVENT DATE: 202008
